FAERS Safety Report 6480398-3 (Version None)
Quarter: 2009Q4

REPORT INFORMATION
  Report Type: 
  Country: None (occurrence: None)
  Receive Date: 20091125
  Receipt Date: 20091111
  Transmission Date: 20100525
  Serious: Yes (Other)
  Sender: FDA-Public Use
  Company Number: 2009SP035831

PATIENT
  Age: 52 Year
  Sex: Female
  Weight: 58 kg

DRUGS (3)
  1. COPPERTONE DRY OIL SPF 2 (COPPERTONE (ACTIVES UNKNOWN) [Suspect]
     Indication: TANNING
     Dosage: ; QD; TOP
     Route: 061
     Dates: start: 20091030, end: 20091101
  2. COPPERTONE DRY OIL SPF 2 (COPPERTONE (ACTIVES UNKNOWN) [Suspect]
     Indication: TANNING
     Dosage: ; QD; TOP
     Route: 061
     Dates: start: 20090101
  3. COPPERTONE (S-P) (ACTIVES UNKNOWN) (COPPERTONE (ACTIVES UNKNOWN) [Suspect]
     Indication: TANNING
     Dosage: ; TOP
     Route: 061
     Dates: start: 20070101

REACTIONS (8)
  - DRY SKIN [None]
  - OEDEMA PERIPHERAL [None]
  - PHARYNGEAL OEDEMA [None]
  - PRURITUS [None]
  - RASH MACULAR [None]
  - RASH PAPULAR [None]
  - SKIN EXFOLIATION [None]
  - SWELLING FACE [None]
